FAERS Safety Report 5074985-7 (Version None)
Quarter: 2006Q3

REPORT INFORMATION
  Report Type: 
  Country: None (occurrence: None)
  Receive Date: 20060804
  Receipt Date: 20060712
  Transmission Date: 20061208
  Serious: Yes (Hospitalization, Other)
  Sender: FDA-Public Use
  Company Number: 2006089850

PATIENT
  Age: 61 Year
  Sex: Male
  Weight: 106.1417 kg

DRUGS (2)
  1. CELEBREX [Suspect]
     Indication: OSTEOARTHRITIS
  2. BEXTRA [Suspect]
     Indication: OSTEOARTHRITIS

REACTIONS (3)
  - CHEST PAIN [None]
  - HYPERTENSION [None]
  - RENAL FAILURE [None]
